FAERS Safety Report 5877584-X (Version None)
Quarter: 2008Q3

REPORT INFORMATION
  Report Type: 
  Country: None (occurrence: None)
  Receive Date: 20080911
  Receipt Date: 20080904
  Transmission Date: 20090109
  Serious: Yes (Other)
  Sender: FDA-Public Use
  Company Number: PHHY2008IE20210

PATIENT
  Age: 40 Year
  Sex: Male

DRUGS (1)
  1. LAMISIL [Suspect]

REACTIONS (3)
  - MUSCLE SPASMS [None]
  - PAIN IN EXTREMITY [None]
  - PARAESTHESIA [None]
